FAERS Safety Report 10518416 (Version 1)
Quarter: 2014Q4

REPORT INFORMATION
  Report Type: Spontaneous
  Country: US (occurrence: None)
  Receive Date: 20141014
  Receipt Date: 20141014
  Transmission Date: 20150528
  Serious: Yes (Hospitalization)
  Sender: FDA-Public Use
  Company Number: None

PATIENT
  Age: 39 Year
  Sex: Male
  Weight: 125 kg

DRUGS (1)
  1. LISINOPRIL. [Suspect]
     Active Substance: LISINOPRIL
     Indication: HYPERTENSION
     Route: 048
     Dates: start: 20090107, end: 20140910

REACTIONS (5)
  - Dysphagia [None]
  - Speech disorder [None]
  - Pharyngeal oedema [None]
  - Peripheral swelling [None]
  - Dyspepsia [None]

NARRATIVE: CASE EVENT DATE: 20140910
